FAERS Safety Report 8446570-8 (Version None)
Quarter: 2012Q2

REPORT INFORMATION
  Report Type: 
  Country: None (occurrence: None)
  Receive Date: 20120618
  Receipt Date: 20120615
  Transmission Date: 20120825
  Serious: Yes (Hospitalization)
  Sender: FDA-Public Use
  Company Number: FR-AMGEN-FRASP2012037178

PATIENT
  Age: 43 Year
  Sex: Male

DRUGS (1)
  1. NEUPOGEN [Suspect]
     Indication: STEM CELL DONOR
     Dosage: 40 UNK, UNK
     Route: 058
     Dates: start: 20040619, end: 20040623

REACTIONS (1)
  - LEIOMYOMA [None]
